FAERS Safety Report 14361513 (Version 18)
Quarter: 2021Q1

REPORT INFORMATION
  Report Type: Report from Study
  Country: CA (occurrence: CA)
  Receive Date: 20180108
  Receipt Date: 20210107
  Transmission Date: 20210419
  Serious: Yes (Hospitalization, Other)
  Sender: FDA-Public Use
  Company Number: CA-TAKEDA-2017TUS024802

PATIENT
  Age: 27 Year
  Sex: Female

DRUGS (15)
  1. VEDOLIZUMAB [Suspect]
     Active Substance: VEDOLIZUMAB
     Dosage: 300 MILLIGRAM
     Route: 042
  2. VEDOLIZUMAB [Suspect]
     Active Substance: VEDOLIZUMAB
     Dosage: 300 MILLIGRAM
     Route: 042
  3. DOVONEX [Concomitant]
     Active Substance: CALCIPOTRIENE
     Indication: PSORIASIS
     Dosage: UNK
  4. FOLIC ACID. [Concomitant]
     Active Substance: FOLIC ACID
     Dosage: UNK
  5. VEDOLIZUMAB [Suspect]
     Active Substance: VEDOLIZUMAB
     Dosage: 300 MILLIGRAM
     Route: 042
  6. MEZAVANT [Concomitant]
     Active Substance: MESALAMINE
     Dosage: UNK UNK, QD
     Route: 048
  7. IRON [Concomitant]
     Active Substance: IRON
     Dosage: UNK UNK, BID
     Route: 048
  8. MEZAVANT [Concomitant]
     Active Substance: MESALAMINE
     Dosage: 1.2 GRAM, QD
     Route: 048
  9. VEDOLIZUMAB [Suspect]
     Active Substance: VEDOLIZUMAB
     Dosage: 300 MILLIGRAM
     Route: 042
  10. CORTIMENT                          /00028601/ [Concomitant]
     Active Substance: HYDROCORTISONE
     Dosage: UNK
  11. VEDOLIZUMAB [Suspect]
     Active Substance: VEDOLIZUMAB
     Indication: COLITIS ULCERATIVE
     Dosage: 300 MILLIGRAM
     Route: 042
     Dates: start: 20171113
  12. VEDOLIZUMAB [Suspect]
     Active Substance: VEDOLIZUMAB
     Dosage: 300 MILLIGRAM
     Route: 042
  13. VEDOLIZUMAB [Suspect]
     Active Substance: VEDOLIZUMAB
     Dosage: 300 MILLIGRAM
     Route: 042
  14. VEDOLIZUMAB [Suspect]
     Active Substance: VEDOLIZUMAB
     Dosage: 300 MILLIGRAM
     Route: 042
  15. VITAMIN B6 [Concomitant]
     Active Substance: PYRIDOXINE HYDROCHLORIDE
     Dosage: UNK

REACTIONS (24)
  - Ovarian cyst ruptured [Unknown]
  - Vision blurred [Recovered/Resolved]
  - Morning sickness [Unknown]
  - Influenza [Not Recovered/Not Resolved]
  - Fallopian tube disorder [Unknown]
  - Migraine [Recovered/Resolved]
  - Glossodynia [Recovered/Resolved]
  - Tongue disorder [Recovered/Resolved]
  - Vulvovaginal mycotic infection [Unknown]
  - Alopecia [Unknown]
  - Heart rate increased [Unknown]
  - Hypoaesthesia [Recovered/Resolved]
  - Distractibility [Unknown]
  - Memory impairment [Unknown]
  - Blood pressure decreased [Unknown]
  - Sinusitis [Not Recovered/Not Resolved]
  - Gastroenteritis [Recovered/Resolved]
  - Fatigue [Unknown]
  - Nasal congestion [Not Recovered/Not Resolved]
  - Nausea [Unknown]
  - Pregnancy [Unknown]
  - Endometritis decidual [Unknown]
  - Menstrual disorder [Unknown]
  - Abdominal pain [Recovered/Resolved]

NARRATIVE: CASE EVENT DATE: 201711
